FAERS Safety Report 6079301-X (Version None)
Quarter: 2009Q1

REPORT INFORMATION
  Report Type: 
  Country: None (occurrence: None)
  Receive Date: 20090216
  Receipt Date: 20090211
  Transmission Date: 20090719
  Serious: Yes (Hospitalization)
  Sender: FDA-Public Use
  Company Number: US-MERCK-0902USA02065

PATIENT
  Age: 35 Year
  Sex: Female

DRUGS (3)
  1. SINGULAIR [Suspect]
     Route: 048
  2. ZYFLO [Concomitant]
     Route: 065
  3. PREDNISOLONE [Suspect]
     Route: 065

REACTIONS (1)
  - SUICIDAL IDEATION [None]
